FAERS Safety Report 15487428 (Version 1)
Quarter: 2018Q4

REPORT INFORMATION
  Report Type: Spontaneous
  Country: US (occurrence: US)
  Receive Date: 20181003
  Receipt Date: 20181003
  Transmission Date: 20190205
  Serious: No
  Sender: FDA-Public Use
  Company Number: None

PATIENT
  Age: 26 Year
  Sex: Female

DRUGS (1)
  1. ZOLMITRIPTAN. [Suspect]
     Active Substance: ZOLMITRIPTAN
     Indication: MIGRAINE
     Route: 045
     Dates: start: 20180920, end: 20180920

REACTIONS (6)
  - Loss of consciousness [None]
  - Nausea [None]
  - Headache [None]
  - Fatigue [None]
  - Motor dysfunction [None]
  - Unresponsive to stimuli [None]

NARRATIVE: CASE EVENT DATE: 20180920
